FAERS Safety Report 22310858 (Version 2)
Quarter: 2023Q4

REPORT INFORMATION
  Report Type: Report from Study
  Country: US (occurrence: US)
  Receive Date: 20230511
  Receipt Date: 20231117
  Transmission Date: 20240109
  Serious: Yes (Hospitalization)
  Sender: FDA-Public Use
  Company Number: US-ARGENX-2022-ARGX-US002199

PATIENT

DRUGS (2)
  1. VYVGART [Suspect]
     Active Substance: EFGARTIGIMOD ALFA-FCAB
     Indication: Myasthenia gravis
     Dosage: 10 MG/KG
     Route: 042
  2. WARFARIN [Concomitant]
     Active Substance: WARFARIN
     Indication: Product used for unknown indication

REACTIONS (8)
  - Hospitalisation [Recovered/Resolved]
  - Therapeutic product ineffective [Unknown]
  - Fall [Recovering/Resolving]
  - Respiratory disorder [Not Recovered/Not Resolved]
  - Pain [Unknown]
  - Catarrh [Unknown]
  - Dizziness [Unknown]
  - Myasthenia gravis crisis [Unknown]

NARRATIVE: CASE EVENT DATE: 20220926
